FAERS Safety Report 17512052 (Version 5)
Quarter: 2020Q2

REPORT INFORMATION
  Report Type: Report from Study
  Country: US (occurrence: US)
  Receive Date: 20200306
  Receipt Date: 20200422
  Transmission Date: 20200713
  Serious: Yes (Hospitalization)
  Sender: FDA-Public Use
  Company Number: US-ACTELION-A-NJ2020-202823

PATIENT
  Age: 48 Year
  Sex: Male
  Weight: 83.45 kg

DRUGS (5)
  1. VELETRI [Suspect]
     Active Substance: EPOPROSTENOL
     Indication: PULMONARY ARTERIAL HYPERTENSION
     Dosage: 22 NG/KG, PER MIN
     Route: 042
  2. UPTRAVI [Suspect]
     Active Substance: SELEXIPAG
     Indication: PULMONARY ARTERIAL HYPERTENSION
     Dosage: 1600 MCG, BID
     Route: 048
  3. ADCIRCA [Concomitant]
     Active Substance: TADALAFIL
  4. ANTIBIOTIC [Concomitant]
     Active Substance: UNSPECIFIED INGREDIENT
  5. OPSUMIT [Suspect]
     Active Substance: MACITENTAN
     Indication: PULMONARY ARTERIAL HYPERTENSION
     Dosage: 10 MG, QD
     Route: 048
     Dates: start: 20150529

REACTIONS (17)
  - Arthralgia [Unknown]
  - Flushing [Unknown]
  - Pain in jaw [Unknown]
  - Productive cough [Not Recovered/Not Resolved]
  - Upper respiratory tract infection [Unknown]
  - Diarrhoea [Unknown]
  - Catheter site pruritus [Unknown]
  - Dyspnoea exertional [Unknown]
  - Sinusitis [Unknown]
  - Dyspnoea [Not Recovered/Not Resolved]
  - Ear infection bacterial [Unknown]
  - Pyrexia [Unknown]
  - Weight decreased [Unknown]
  - Catheter site erythema [Unknown]
  - Catheter site rash [Unknown]
  - Dizziness [Unknown]
  - Eye swelling [Recovering/Resolving]

NARRATIVE: CASE EVENT DATE: 20200226
